FAERS Safety Report 10489081 (Version 3)
Quarter: 2015Q2

REPORT INFORMATION
  Report Type: Spontaneous
  Country: US (occurrence: US)
  Receive Date: 20141002
  Receipt Date: 20150511
  Transmission Date: 20150821
  Serious: Yes (Hospitalization)
  Sender: FDA-Public Use
  Company Number: US-BAYER-2014-145553

PATIENT
  Age: 19 Year
  Sex: Female
  Weight: 40.36 kg

DRUGS (3)
  1. BACTRIM [Concomitant]
     Active Substance: SULFAMETHOXAZOLE\TRIMETHOPRIM
  2. MIRENA [Suspect]
     Active Substance: LEVONORGESTREL
     Indication: CONTRACEPTION
     Dosage: 20 MCG/24HR, CONT
     Route: 015
     Dates: start: 20121029, end: 20131118
  3. IBUPROFEN AL [Concomitant]
     Active Substance: IBUPROFEN

REACTIONS (4)
  - Injury [None]
  - Uterine perforation [None]
  - Pain [None]
  - Device issue [None]

NARRATIVE: CASE EVENT DATE: 201212
